FAERS Safety Report 24770207 (Version 1)
Quarter: 2024Q4

REPORT INFORMATION
  Report Type: Spontaneous
  Country: US (occurrence: US)
  Receive Date: 20241224
  Receipt Date: 20241224
  Transmission Date: 20250114
  Serious: Yes (Hospitalization, Other)
  Sender: HIKMA
  Company Number: US-HIKMA PHARMACEUTICALS USA INC.-US-H14001-24-11664

PATIENT

DRUGS (1)
  1. AMIODARONE [Suspect]
     Active Substance: AMIODARONE
     Indication: Product used for unknown indication
     Dosage: 150 MILLIGRAM
     Route: 040

REACTIONS (4)
  - Dyspnoea [Unknown]
  - Respiratory distress [Unknown]
  - Tachycardia [Unknown]
  - Breath sounds abnormal [Unknown]
